FAERS Safety Report 9095540 (Version 1)
Quarter: 2013Q1

REPORT INFORMATION
  Report Type: Spontaneous
  Country: AU (occurrence: None)
  Receive Date: 20130124
  Receipt Date: 20130124
  Transmission Date: 20140127
  Serious: Yes (Death)
  Sender: FDA-Public Use
  Company Number: 2013-001641

PATIENT
  Sex: Female

DRUGS (1)
  1. AFLIBERCEPT (AFLIBERCEPT) SOLUTION FOR INJECTION [Suspect]
     Indication: AGE-RELATED MACULAR DEGENERATION
     Dates: start: 201212

REACTIONS (1)
  - Cerebrovascular accident [None]
